FAERS Safety Report 23724243 (Version 1)
Quarter: 2024Q2

REPORT INFORMATION
  Report Type: Spontaneous
  Country: IT (occurrence: IT)
  Receive Date: 20240409
  Receipt Date: 20240409
  Transmission Date: 20240715
  Serious: No
  Sender: FDA-Public Use
  Company Number: IT-ROCHE-3524221

PATIENT
  Age: 58 Year
  Sex: Female

DRUGS (5)
  1. PRALSETINIB [Suspect]
     Active Substance: PRALSETINIB
     Indication: Non-small cell lung cancer
     Route: 048
     Dates: start: 202001
  2. PRALSETINIB [Suspect]
     Active Substance: PRALSETINIB
     Route: 048
     Dates: start: 202001
  3. CISPLATIN [Concomitant]
     Active Substance: CISPLATIN
  4. PEMETREXED [Concomitant]
     Active Substance: PEMETREXED
  5. CABOZANTINIB [Concomitant]
     Active Substance: CABOZANTINIB

REACTIONS (1)
  - Pneumonitis [Recovering/Resolving]
